FAERS Safety Report 9712432 (Version 1)
Quarter: 2013Q4

REPORT INFORMATION
  Report Type: Spontaneous
  Country: US (occurrence: US)
  Receive Date: 20131126
  Receipt Date: 20131126
  Transmission Date: 20140711
  Serious: No
  Sender: FDA-Public Use
  Company Number: US-BRISTOL-MYERS SQUIBB COMPANY-18872549

PATIENT
  Age: 63 Year
  Sex: Female
  Weight: 88.43 kg

DRUGS (5)
  1. BYDUREON [Suspect]
     Indication: TYPE 2 DIABETES MELLITUS
     Route: 058
  2. LISINOPRIL [Concomitant]
  3. CRESTOR [Concomitant]
  4. NOVOLOG [Concomitant]
     Dosage: NOVOLOG 70/30
  5. ASPIRIN [Concomitant]

REACTIONS (1)
  - Injection site pain [Recovering/Resolving]
